FAERS Safety Report 5190348-8 (Version None)
Quarter: 2006Q4

REPORT INFORMATION
  Report Type: 
  Country: None (occurrence: None)
  Receive Date: 20061222
  Receipt Date: 20060609
  Transmission Date: 20070319
  Serious: No
  Sender: FDA-Public Use
  Company Number: US-AMGEN-US182440

PATIENT
  Sex: Male

DRUGS (17)
  1. ARANESP [Suspect]
     Indication: RENAL FAILURE CHRONIC
     Route: 058
  2. IMURAN [Concomitant]
     Route: 065
  3. CELLCEPT [Concomitant]
     Route: 065
  4. NEORAL [Concomitant]
     Route: 065
  5. PREDNISONE TAB [Concomitant]
     Route: 065
  6. ZOCOR [Concomitant]
     Route: 065
  7. ALLOPURINOL [Concomitant]
     Route: 065
  8. PROSCAR [Concomitant]
     Route: 065
  9. SODIUM BICARBONATE [Concomitant]
     Route: 065
  10. OMEPRAZOLE [Concomitant]
     Route: 065
  11. TUMS [Concomitant]
     Route: 065
  12. CALCITRIOL [Concomitant]
     Route: 065
  13. NIFEDIPINE [Concomitant]
     Route: 065
  14. LISINOPRIL [Concomitant]
     Route: 065
  15. FUROSEMIDE INTENSOL [Concomitant]
     Route: 065
  16. FLOMAX [Concomitant]
     Route: 065
  17. FLUTICASONE PROPIONATE [Concomitant]
     Route: 065

REACTIONS (1)
  - THERAPEUTIC RESPONSE DECREASED [None]
